FAERS Safety Report 25249903 (Version 1)
Quarter: 2025Q2

REPORT INFORMATION
  Report Type: Other
  Country: US (occurrence: US)
  Receive Date: 20250429
  Receipt Date: 20250429
  Transmission Date: 20250716
  Serious: Yes (Life-Threatening, Hospitalization, Other)
  Sender: DBL GROUP
  Company Number: US-DBL Pharmaceuticals, Inc.-2175803

PATIENT
  Age: 50 Year
  Sex: Female

DRUGS (10)
  1. METHOCARBAMOL [Suspect]
     Active Substance: METHOCARBAMOL
     Indication: Product used for unknown indication
  2. CLONIDINE [Suspect]
     Active Substance: CLONIDINE
  3. TRAZODONE [Suspect]
     Active Substance: TRAZODONE HYDROCHLORIDE
  4. BUPROPION [Suspect]
     Active Substance: BUPROPION
  5. TAMSULOSIN HYDROCHLORIDE [Suspect]
     Active Substance: TAMSULOSIN HYDROCHLORIDE
  6. OLANZAPINE [Suspect]
     Active Substance: OLANZAPINE
  7. MAGNESIUM OXIDE [Suspect]
     Active Substance: MAGNESIUM OXIDE
  8. DULOXETINE [Suspect]
     Active Substance: DULOXETINE
  9. CYCLOBENZAPRINE [Suspect]
     Active Substance: CYCLOBENZAPRINE
  10. GABAPENTIN [Suspect]
     Active Substance: GABAPENTIN

REACTIONS (5)
  - Distributive shock [Recovered/Resolved]
  - Intentional overdose [Unknown]
  - Hypotension [Recovered/Resolved]
  - Tachycardia [Recovered/Resolved]
  - Depressed level of consciousness [Recovered/Resolved]
